FAERS Safety Report 16350826 (Version 3)
Quarter: 2020Q1

REPORT INFORMATION
  Report Type: Spontaneous
  Country: IT (occurrence: IT)
  Receive Date: 20190524
  Receipt Date: 20200121
  Transmission Date: 20200409
  Serious: Yes (Hospitalization)
  Sender: FDA-Public Use
  Company Number: IT-SUN PHARMACEUTICAL INDUSTRIES LTD-2019RR-208672

PATIENT
  Age: 69 Year

DRUGS (11)
  1. MEDIPO [Suspect]
     Active Substance: SIMVASTATIN
     Indication: HYPERCHOLESTEROLAEMIA
     Dosage: 20 MILLIGRAM, DAILY
     Route: 048
  2. CHLOROQUINE. [Suspect]
     Active Substance: CHLOROQUINE
     Indication: RHEUMATOID ARTHRITIS
     Dosage: 250 MILLIGRAM, DAILY
     Route: 048
  3. LETROZOLE. [Suspect]
     Active Substance: LETROZOLE
     Indication: NEOPLASM MALIGNANT
     Dosage: 2.5 MILLIGRAM, DAILY
     Route: 048
  4. ZAROXOLYN [Suspect]
     Active Substance: METOLAZONE
     Indication: HYPERTENSION
     Dosage: 10 MILLIGRAM, DAILY
     Route: 048
  5. DIURESIX [Suspect]
     Active Substance: TORSEMIDE
     Indication: OEDEMA
     Dosage: 10 MILLIGRAM, DAILY
     Route: 048
  6. OMEPRAZOLE. [Suspect]
     Active Substance: OMEPRAZOLE
     Indication: PRODUCT USED FOR UNKNOWN INDICATION
     Dosage: 20 MILLIGRAM, DAILY
     Route: 048
  7. DIBASE [Suspect]
     Active Substance: CHOLECALCIFEROL
     Indication: VITAMIN E DEFICIENCY
     Dosage: 50000 KILO-INTERNATIONAL UNIT, UNK
     Route: 048
  8. KOLIBRI 37,5 MG / 325 MG, COMPRESSE RIVESTITE CON FILM [Suspect]
     Active Substance: ACETAMINOPHEN\TRAMADOL HYDROCHLORIDE
     Indication: PAIN
     Dosage: 362.5 MILLIGRAM, DAILY
     Route: 048
  9. TIMOD [Concomitant]
     Indication: GLAUCOMA
     Dosage: 5 MILLIGRAM, DAILY
     Route: 047
  10. MICARDIS [Suspect]
     Active Substance: TELMISARTAN
     Indication: HYPERTENSION
     Dosage: 80 MILLIGRAM, DAILY
     Route: 048
  11. METFONORM [Suspect]
     Active Substance: METFORMIN HYDROCHLORIDE
     Indication: DIABETES MELLITUS
     Dosage: 1500 MILLIGRAM, DAILY
     Route: 048

REACTIONS (1)
  - Urticaria [Unknown]

NARRATIVE: CASE EVENT DATE: 20190414
